FAERS Safety Report 22274410 (Version 2)
Quarter: 2023Q2

REPORT INFORMATION
  Report Type: Report from Study
  Country: US (occurrence: None)
  Receive Date: 20230502
  Receipt Date: 20230613
  Transmission Date: 20230722
  Serious: Yes (Hospitalization)
  Sender: FDA-Public Use
  Company Number: 2023A095644

PATIENT
  Sex: Female

DRUGS (1)
  1. FASENRA [Suspect]
     Active Substance: BENRALIZUMAB
     Route: 058

REACTIONS (5)
  - Pneumonia [Unknown]
  - Influenza [Unknown]
  - Cough [Unknown]
  - Dyspnoea [Unknown]
  - Urinary incontinence [Unknown]
